FAERS Safety Report 8059572-0 (Version None)
Quarter: 2012Q1

REPORT INFORMATION
  Report Type: 
  Country: None (occurrence: None)
  Receive Date: 20120120
  Receipt Date: 20120117
  Transmission Date: 20120608
  Serious: Yes (Hospitalization)
  Sender: FDA-Public Use
  Company Number: DE-SANOFI-AVENTIS-2012SA003163

PATIENT
  Age: 72 Year
  Sex: Female
  Weight: 56 kg

DRUGS (3)
  1. FLUOROURACIL [Suspect]
     Indication: COLON CANCER
     Route: 041
     Dates: start: 20101012, end: 20101012
  2. FLUOROURACIL [Suspect]
     Route: 041
     Dates: start: 20110122, end: 20110122
  3. OXALIPLATIN [Suspect]
     Indication: COLON CANCER
     Route: 041

REACTIONS (2)
  - ACUTE POLYNEUROPATHY [None]
  - MOOD DISORDER DUE TO A GENERAL MEDICAL CONDITION [None]
